FAERS Safety Report 9520404 (Version 2)
Quarter: 2013Q3

REPORT INFORMATION
  Report Type: Spontaneous
  Country: FI (occurrence: FI)
  Receive Date: 20130912
  Receipt Date: 20130926
  Transmission Date: 20140515
  Serious: Yes (Other)
  Sender: FDA-Public Use
  Company Number: FI-ROCHE-1270769

PATIENT
  Age: 26 Year
  Sex: Female

DRUGS (8)
  1. MABTHERA [Suspect]
     Indication: SYSTEMIC LUPUS ERYTHEMATOSUS
     Route: 042
     Dates: start: 20130709
  2. MABTHERA [Suspect]
     Indication: OFF LABEL USE
     Route: 042
     Dates: start: 20130801
  3. SOMAC (FINLAND) [Concomitant]
  4. CALCICHEW [Concomitant]
  5. KALEORID [Concomitant]
  6. PREDNISOLON [Concomitant]
  7. MYCOPHENOLATE MOFETIL [Concomitant]
     Route: 065
  8. PANADOL FORTE [Concomitant]

REACTIONS (9)
  - Pyrexia [Recovered/Resolved]
  - Malaise [Recovered/Resolved]
  - Vomiting [Recovered/Resolved]
  - Neutropenia [Recovered/Resolved]
  - Sensory disturbance [Recovered/Resolved]
  - Diaphragmalgia [Recovered/Resolved]
  - Erythema [Recovered/Resolved]
  - Cough [Recovered/Resolved]
  - Dyspnoea [Recovered/Resolved]
